FAERS Safety Report 6982725-7 (Version None)
Quarter: 2010Q3

REPORT INFORMATION
  Report Type: 
  Country: None (occurrence: None)
  Receive Date: 20100914
  Receipt Date: 20100323
  Transmission Date: 20110219
  Serious: Yes (Other)
  Sender: FDA-Public Use
  Company Number: US-PFIZER INC-2010037427

PATIENT
  Sex: Female

DRUGS (6)
  1. LYRICA [Suspect]
     Indication: FIBROMYALGIA
     Dosage: 75 MG, 2X/DAY
     Route: 048
     Dates: start: 20100101, end: 20100101
  2. OXYCODONE [Concomitant]
     Indication: PAIN
     Dosage: UNK
  3. FENTANYL [Concomitant]
     Indication: PAIN
     Dosage: UNK
  4. ELAVIL [Concomitant]
     Dosage: UNK
  5. CYMBALTA [Concomitant]
     Indication: DEPRESSION
     Dosage: 60 MG, UNK
     Route: 048
  6. MELOXICAM [Concomitant]
     Dosage: UNK

REACTIONS (4)
  - ATAXIA [None]
  - DIZZINESS [None]
  - SWELLING [None]
  - TREMOR [None]
